FAERS Safety Report 6216969-9 (Version None)
Quarter: 2009Q2

REPORT INFORMATION
  Report Type: 
  Country: None (occurrence: None)
  Receive Date: 20090604
  Receipt Date: 20090529
  Transmission Date: 20091009
  Serious: Yes (Other)
  Sender: FDA-Public Use
  Company Number: 2006SP005301

PATIENT
  Age: 28 Year
  Sex: Female

DRUGS (2)
  1. PEG-INTRON [Suspect]
     Indication: HEPATITIS C
     Dosage: SC
     Route: 058
     Dates: start: 20060921, end: 20070321
  2. RIBAVIRIN [Suspect]
     Indication: HEPATITIS C
     Dosage: PO
     Route: 048
     Dates: start: 20060921, end: 20070321

REACTIONS (31)
  - ANAEMIA [None]
  - ANISOCYTOSIS [None]
  - BLOOD CHOLESTEROL INCREASED [None]
  - BLOOD GLUCOSE ABNORMAL [None]
  - BLOOD POTASSIUM DECREASED [None]
  - BLOOD THYROID STIMULATING HORMONE INCREASED [None]
  - BLOOD TRIGLYCERIDES INCREASED [None]
  - CHEST PAIN [None]
  - DIZZINESS [None]
  - DRY SKIN [None]
  - DYSPNOEA EXERTIONAL [None]
  - FIBRIN D DIMER INCREASED [None]
  - FLUSHING [None]
  - HYPERHIDROSIS [None]
  - IRRITABILITY [None]
  - LARYNGITIS [None]
  - LIPIDS INCREASED [None]
  - LOSS OF CONSCIOUSNESS [None]
  - MONOCYTE COUNT INCREASED [None]
  - NEUTROPHIL COUNT DECREASED [None]
  - PLATELET COUNT DECREASED [None]
  - PYREXIA [None]
  - RASH [None]
  - RIGHT VENTRICULAR HYPERTROPHY [None]
  - SKIN DISORDER [None]
  - THINKING ABNORMAL [None]
  - THYROID DISORDER [None]
  - URTICARIA [None]
  - VOMITING [None]
  - WEIGHT DECREASED [None]
  - WHITE BLOOD CELL COUNT DECREASED [None]
